FAERS Safety Report 6478577-4 (Version None)
Quarter: 2009Q4

REPORT INFORMATION
  Report Type: 
  Country: None (occurrence: None)
  Receive Date: 20091207
  Receipt Date: 20091125
  Transmission Date: 20100525
  Serious: Yes (Hospitalization, Other)
  Sender: FDA-Public Use
  Company Number: US-ELI_LILLY_AND_COMPANY-US200909003733

PATIENT
  Sex: Female

DRUGS (2)
  1. FORTEO [Suspect]
     Indication: OSTEOPOROSIS
     Dosage: UNK, UNK
     Dates: start: 20090907, end: 20091001
  2. FORTEO [Suspect]
     Dates: start: 20091120

REACTIONS (6)
  - BREAST CANCER RECURRENT [None]
  - BREAST MASS [None]
  - COUGH [None]
  - DECREASED APPETITE [None]
  - DYSPEPSIA [None]
  - THROAT IRRITATION [None]
